FAERS Safety Report 9493973 (Version 2)
Quarter: 2013Q3

REPORT INFORMATION
  Report Type: Report from Study
  Country: GB (occurrence: GB)
  Receive Date: 20130903
  Receipt Date: 20130913
  Transmission Date: 20140515
  Serious: Yes (Death)
  Sender: FDA-Public Use
  Company Number: GB-ROCHE-1269303

PATIENT
  Age: 94 Year
  Sex: Male

DRUGS (2)
  1. RANIBIZUMAB [Suspect]
     Indication: AGE-RELATED MACULAR DEGENERATION
     Route: 050
     Dates: start: 20111213
  2. RANIBIZUMAB [Suspect]
     Route: 050
     Dates: start: 20121102

REACTIONS (1)
  - Chronic obstructive pulmonary disease [Fatal]
